FAERS Safety Report 5308109-5 (Version None)
Quarter: 2007Q2

REPORT INFORMATION
  Report Type: 
  Country: None (occurrence: None)
  Receive Date: 20070426
  Receipt Date: 20070418
  Transmission Date: 20071010
  Serious: Yes (Other)
  Sender: FDA-Public Use
  Company Number: PHBS2007BE06811

PATIENT
  Age: 50 Year
  Sex: Male

DRUGS (6)
  1. HMG COA REDUCTASE INHIBITORS [Concomitant]
  2. GLUCOPHAGE [Concomitant]
  3. DAFALGAN [Concomitant]
  4. ALLOPURINOL [Concomitant]
  5. OMEPRAZOLE [Concomitant]
  6. LAMISIL [Suspect]
     Indication: ONYCHOMYCOSIS
     Dosage: 250 MG/DAY
     Route: 048
     Dates: start: 20070201, end: 20070301

REACTIONS (1)
  - HAEMATOCHEZIA [None]
